FAERS Safety Report 7931523-6 (Version None)
Quarter: 2011Q4

REPORT INFORMATION
  Report Type: 
  Country: None (occurrence: None)
  Receive Date: 20111121
  Receipt Date: 20111121
  Transmission Date: 20120403
  Serious: Yes (Hospitalization)
  Sender: FDA-Public Use
  Company Number: None

PATIENT
  Age: 60 Year
  Sex: Male
  Weight: 72.574 kg

DRUGS (2)
  1. EGRIFTA [Suspect]
     Indication: LIPODYSTROPHY ACQUIRED
     Dosage: 1 ML
     Route: 058
     Dates: start: 20110922, end: 20111118
  2. EGRIFTA [Suspect]
     Indication: HIV INFECTION
     Dosage: 1 ML
     Route: 058
     Dates: start: 20110922, end: 20111118

REACTIONS (5)
  - BLOOD CHLORIDE DECREASED [None]
  - HYPERGLYCAEMIA [None]
  - BLOOD SODIUM DECREASED [None]
  - CONFUSIONAL STATE [None]
  - BLOOD PH DECREASED [None]
